FAERS Safety Report 7835199-8 (Version None)
Quarter: 2011Q4

REPORT INFORMATION
  Report Type: 
  Country: None (occurrence: None)
  Receive Date: 20111020
  Receipt Date: 20110928
  Transmission Date: 20120403
  Serious: Yes (Hospitalization)
  Sender: FDA-Public Use
  Company Number: NL-006563

PATIENT
  Age: 86 Year
  Sex: Female

DRUGS (5)
  1. HYDROCHLOROTHIAZIDE [Suspect]
     Indication: HYPERTENSION
  2. ANTIHYPERTENSIVE [Concomitant]
  3. COUMARIN [Concomitant]
  4. DESMOPRESSIN ACETATE [Suspect]
     Indication: NOCTURIA
     Dosage: (ORAL)
     Route: 048
  5. DRUG USED IN DIABETES [Concomitant]

REACTIONS (10)
  - CEREBROVASCULAR ACCIDENT [None]
  - LEUKOCYTOSIS [None]
  - HYPONATRAEMIA [None]
  - SLEEP DISORDER [None]
  - APRAXIA [None]
  - COMMUNICATION DISORDER [None]
  - SPINAL COMPRESSION FRACTURE [None]
  - CONFUSIONAL STATE [None]
  - URINARY TRACT INFECTION [None]
  - DEPRESSED LEVEL OF CONSCIOUSNESS [None]
